FAERS Safety Report 13008609 (Version 2)
Quarter: 2017Q1

REPORT INFORMATION
  Report Type: Spontaneous
  Country: US (occurrence: US)
  Receive Date: 20161208
  Receipt Date: 20170109
  Transmission Date: 20170428
  Serious: No
  Sender: FDA-Public Use
  Company Number: US-PFIZER INC-2016559201

PATIENT
  Age: 50 Year
  Sex: Female

DRUGS (6)
  1. VICODIN [Concomitant]
     Active Substance: ACETAMINOPHEN\HYDROCODONE BITARTRATE
     Dosage: UNK
     Dates: start: 2010
  2. FOLIC ACID. [Concomitant]
     Active Substance: FOLIC ACID
     Dosage: UNK
     Dates: start: 2010
  3. XELJANZ XR [Suspect]
     Active Substance: TOFACITINIB CITRATE
     Indication: RHEUMATOID ARTHRITIS
     Dosage: 11 MG, UNK
     Dates: start: 20160915, end: 20161101
  4. XELJANZ [Suspect]
     Active Substance: TOFACITINIB CITRATE
     Indication: RHEUMATOID ARTHRITIS
     Dosage: 5 MG, 2X/DAY
     Dates: start: 20160820, end: 20161117
  5. METHOTREXATE. [Concomitant]
     Active Substance: METHOTREXATE
     Dosage: UNK
     Dates: start: 2010
  6. SYNTHROID [Concomitant]
     Active Substance: LEVOTHYROXINE SODIUM
     Dosage: UNK
     Dates: start: 1996

REACTIONS (6)
  - Pleurisy [Recovered/Resolved]
  - Fatigue [Recovering/Resolving]
  - Dry skin [Recovered/Resolved]
  - Upper respiratory tract infection [Recovered/Resolved]
  - Weight increased [Recovered/Resolved]
  - Dyspnoea [Recovered/Resolved]

NARRATIVE: CASE EVENT DATE: 201609
